FAERS Safety Report 9190629 (Version 2)
Quarter: 2013Q2

REPORT INFORMATION
  Report Type: Spontaneous
  Country: US (occurrence: US)
  Receive Date: 20130326
  Receipt Date: 20130408
  Transmission Date: 20140414
  Serious: Yes (Hospitalization, Other)
  Sender: FDA-Public Use
  Company Number: US-BAXTER-2013BAX010871

PATIENT
  Age: 55 Year
  Sex: Male

DRUGS (2)
  1. DIANEAL LOW CALCIUM [Suspect]
     Indication: PERITONEAL DIALYSIS
     Route: 033
  2. DIANEAL LOW CALCIUM [Suspect]
     Indication: PERITONEAL DIALYSIS
     Route: 033
     Dates: start: 201212

REACTIONS (7)
  - Pneumoperitoneum [Recovering/Resolving]
  - Sepsis [Recovering/Resolving]
  - Bone abscess [Unknown]
  - Haemoglobin abnormal [Unknown]
  - Cardiac disorder [Unknown]
  - Procedural complication [Unknown]
  - Dyspnoea [Recovering/Resolving]
